FAERS Safety Report 4907971-5 (Version None)
Quarter: 2006Q1

REPORT INFORMATION
  Report Type: 
  Country: None (occurrence: None)
  Receive Date: 20060210
  Receipt Date: 20060124
  Transmission Date: 20060701
  Serious: Yes (Hospitalization)
  Sender: FDA-Public Use
  Company Number: PHEH2006US01307

PATIENT
  Age: 74 Year
  Sex: Female

DRUGS (1)
  1. GLEEVEC [Suspect]
     Indication: CHRONIC MYELOID LEUKAEMIA
     Dosage: 400 MG, QD
     Route: 048
     Dates: start: 20051222

REACTIONS (5)
  - ASTHENIA [None]
  - BLOOD CREATININE INCREASED [None]
  - DIARRHOEA [None]
  - GASTROENTERITIS CRYPTOSPORIDIAL [None]
  - HAEMOGLOBIN DECREASED [None]
